FAERS Safety Report 4952865-2 (Version None)
Quarter: 2006Q1

REPORT INFORMATION
  Report Type: 
  Country: None (occurrence: None)
  Receive Date: 20060320
  Receipt Date: 20060307
  Transmission Date: 20060701
  Serious: Yes (Other)
  Sender: FDA-Public Use
  Company Number: 2006034444

PATIENT
  Age: 67 Year
  Sex: Male
  Weight: 129.2752 kg

DRUGS (5)
  1. DOSTINEX [Suspect]
     Indication: PROLACTIN-PRODUCING PITUITARY TUMOUR
     Dosage: UNK (0.5 MG, 2 IN 1 WK), UNKNOWN
     Route: 065
     Dates: start: 20050501
  2. ALTACE [Concomitant]
  3. PREDNISONE TAB [Concomitant]
  4. LEVOXYL [Concomitant]
  5. ANDROGEL [Concomitant]

REACTIONS (3)
  - BLOOD PROLACTIN INCREASED [None]
  - CONDITION AGGRAVATED [None]
  - DRUG EFFECT DECREASED [None]
